FAERS Safety Report 8912664 (Version 3)
Quarter: 2013Q1

REPORT INFORMATION
  Report Type: Spontaneous
  Country: US (occurrence: US)
  Receive Date: 20121115
  Receipt Date: 20130212
  Transmission Date: 20140127
  Serious: No
  Sender: FDA-Public Use
  Company Number: US-PFIZER INC-2012285495

PATIENT
  Sex: Female

DRUGS (5)
  1. ATORVASTATIN CALCIUM [Suspect]
     Dosage: 20 MG, UNK
     Dates: start: 201205, end: 201206
  2. ATORVASTATIN CALCIUM [Suspect]
     Dosage: 20 MG, UNK
     Dates: start: 201209
  3. ATORVASTATIN CALCIUM [Suspect]
     Dosage: 10 MG, UNK
  4. ATORVASTATIN CALCIUM [Suspect]
     Dosage: 5 MG, UNK
     Dates: end: 20121026
  5. IBUPROFEN [Concomitant]
     Dosage: UNK

REACTIONS (2)
  - Back pain [Unknown]
  - Pelvic pain [Unknown]
